FAERS Safety Report 7081083-X (Version None)
Quarter: 2010Q4

REPORT INFORMATION
  Report Type: 
  Country: None (occurrence: None)
  Receive Date: 20101103
  Receipt Date: 20101027
  Transmission Date: 20110411
  Serious: Yes (Other)
  Sender: FDA-Public Use
  Company Number: GB-TEVA-250776ISR

PATIENT
  Age: 34 Year
  Sex: Male
  Weight: 78 kg

DRUGS (1)
  1. FUROSEMIDE [Suspect]
     Indication: NEPHROTIC SYNDROME
     Route: 048

REACTIONS (3)
  - DRY THROAT [None]
  - DYSPNOEA [None]
  - NASAL CONGESTION [None]
